FAERS Safety Report 18332393 (Version 1)
Quarter: 2020Q3

REPORT INFORMATION
  Report Type: Spontaneous
  Country: CN (occurrence: CN)
  Receive Date: 20200930
  Receipt Date: 20200930
  Transmission Date: 20201103
  Serious: Yes (Other)
  Sender: FDA-Public Use
  Company Number: CN-ASTRAZENECA-2020SF23723

PATIENT
  Age: 28099 Day
  Sex: Male
  Weight: 59 kg

DRUGS (4)
  1. HEPARIN CALCIUM [Concomitant]
     Active Substance: HEPARIN CALCIUM
     Indication: ACUTE MYOCARDIAL INFARCTION
     Dosage: 4100IU QD IH
     Route: 058
     Dates: start: 20200908, end: 20200919
  2. ATORVASTATIN CALCIUM. [Concomitant]
     Active Substance: ATORVASTATIN CALCIUM
     Indication: ACUTE MYOCARDIAL INFARCTION
     Route: 048
     Dates: start: 20200908, end: 20200919
  3. ASPIRIN. [Suspect]
     Active Substance: ASPIRIN
     Indication: ACUTE MYOCARDIAL INFARCTION
     Route: 048
     Dates: start: 20200908, end: 20200910
  4. TICAGRELOR. [Suspect]
     Active Substance: TICAGRELOR
     Indication: ACUTE MYOCARDIAL INFARCTION
     Route: 048
     Dates: start: 20200908, end: 20200919

REACTIONS (6)
  - Benign prostatic hyperplasia [Unknown]
  - Dysuria [Unknown]
  - Haemorrhage urinary tract [Unknown]
  - Urinary tract injury [Unknown]
  - Abdominal distension [Recovering/Resolving]
  - Haematuria [Recovering/Resolving]

NARRATIVE: CASE EVENT DATE: 20200909
